FAERS Safety Report 7997490-4 (Version None)
Quarter: 2011Q4

REPORT INFORMATION
  Report Type: 
  Country: None (occurrence: None)
  Receive Date: 20111221
  Receipt Date: 20111221
  Transmission Date: 20120403
  Serious: Yes (Life-Threatening, Hospitalization)
  Sender: FDA-Public Use
  Company Number: None

PATIENT
  Age: 82 Year
  Sex: Male
  Weight: 854.56 kg

DRUGS (1)
  1. VELCADE [Suspect]
     Indication: MULTIPLE MYELOMA
     Dosage: 1.9 MG
     Route: 042
     Dates: start: 20101221, end: 20110628

REACTIONS (3)
  - ENTEROCOCCAL INFECTION [None]
  - SEPTIC SHOCK [None]
  - PRODUCT CONTAMINATION MICROBIAL [None]
